FAERS Safety Report 12400623 (Version 1)
Quarter: 2016Q2

REPORT INFORMATION
  Report Type: Spontaneous
  Country: US (occurrence: None)
  Receive Date: 20160524
  Receipt Date: 20160524
  Transmission Date: 20160815
  Serious: Yes (Life-Threatening, Hospitalization, Disabling, Other)
  Sender: FDA-Public Use
  Company Number: None

PATIENT
  Age: 74 Year
  Sex: Male
  Weight: 108 kg

DRUGS (7)
  1. OMEGA-3 FATTY ACIDS-VITAMIN E [Concomitant]
  2. LOVASTATIN. [Concomitant]
     Active Substance: LOVASTATIN
  3. COLACE [Concomitant]
     Active Substance: DOCUSATE SODIUM
  4. ASPIRIN. [Concomitant]
     Active Substance: ASPIRIN
  5. MULTIVITAMIN [Concomitant]
     Active Substance: VITAMINS
  6. IPILIMUMAB [Suspect]
     Active Substance: IPILIMUMAB
     Indication: MALIGNANT MELANOMA STAGE III
     Route: 040
     Dates: start: 20160310, end: 20160331
  7. OXYCODONE [Concomitant]
     Active Substance: OXYCODONE

REACTIONS (6)
  - Autonomic neuropathy [None]
  - Hypophysitis [None]
  - Sinus bradycardia [None]
  - Neuropathy peripheral [None]
  - Oesophageal achalasia [None]
  - Presbyoesophagus [None]
